FAERS Safety Report 9311759 (Version 1)
Quarter: 2013Q2

REPORT INFORMATION
  Report Type: Spontaneous
  Country: US (occurrence: US)
  Receive Date: 20130524
  Receipt Date: 20130524
  Transmission Date: 20140414
  Serious: Yes (Other)
  Sender: FDA-Public Use
  Company Number: US-RB-054241-13

PATIENT
  Age: 24 Month
  Sex: Female

DRUGS (1)
  1. DELSYM CHILD GRAPE [Suspect]
     Indication: PRODUCT USED FOR UNKNOWN INDICATION
     Route: 048
     Dates: start: 20130512

REACTIONS (6)
  - Crying [Not Recovered/Not Resolved]
  - Pain [Not Recovered/Not Resolved]
  - Restlessness [Not Recovered/Not Resolved]
  - Abnormal behaviour [Not Recovered/Not Resolved]
  - Confusional state [Not Recovered/Not Resolved]
  - Accidental exposure to product by child [Unknown]
